FAERS Safety Report 24187075 (Version 1)
Quarter: 2024Q3

REPORT INFORMATION
  Report Type: Report from Study
  Country: US (occurrence: None)
  Receive Date: 20240808
  Receipt Date: 20240808
  Transmission Date: 20241017
  Serious: Yes (Hospitalization, Congenital Anomaly)
  Sender: ASTRAZENECA
  Company Number: 2022A115302

PATIENT
  Weight: 101.2 kg

DRUGS (2)
  1. LYNPARZA [Suspect]
     Active Substance: OLAPARIB
     Indication: Ovarian cancer
     Dosage: REDUCED DOSAGE
     Route: 048
  2. LYNPARZA [Suspect]
     Active Substance: OLAPARIB
     Indication: Ovarian cancer
     Route: 048
     Dates: start: 202111

REACTIONS (5)
  - Dehydration [Unknown]
  - Peripheral swelling [Not Recovered/Not Resolved]
  - Epistaxis [Unknown]
  - Nausea [Unknown]
  - Vomiting [Unknown]
